FAERS Safety Report 7795089 (Version 5)
Quarter: 2016Q1

REPORT INFORMATION
  Report Type: Spontaneous
  Country: JP (occurrence: JP)
  Receive Date: 20110201
  Receipt Date: 20160120
  Transmission Date: 20160526
  Serious: Yes (Hospitalization, Other)
  Sender: FDA-Public Use
  Company Number: JP-PFIZER INC-2011020777

PATIENT
  Age: 80 Year
  Sex: Female
  Weight: 63.5 kg

DRUGS (13)
  1. GASTER [Concomitant]
     Active Substance: FAMOTIDINE
     Indication: ABDOMINAL DISCOMFORT
     Dosage: UNK
  2. OPALMON [Concomitant]
     Active Substance: LIMAPROST
     Indication: LUMBAR SPINAL STENOSIS
     Dosage: UNK
  3. ABILIT [Concomitant]
     Active Substance: SULPIRIDE
     Dosage: UNK
     Dates: end: 20101220
  4. ATELEC [Concomitant]
     Active Substance: CILNIDIPINE
     Indication: HYPERTENSION
     Dosage: UNK
  5. ALLEGRA [Concomitant]
     Active Substance: FEXOFENADINE HYDROCHLORIDE
     Indication: PRURITUS
     Dosage: UNK
  6. GASMOTIN [Concomitant]
     Active Substance: MOSAPRIDE CITRATE
     Indication: ABDOMINAL DISCOMFORT
     Dosage: UNK
  7. MYSLEE [Concomitant]
     Active Substance: ZOLPIDEM TARTRATE
     Indication: INSOMNIA
     Dosage: UNK
  8. MUCOSTA [Concomitant]
     Active Substance: REBAMIPIDE
     Indication: ABDOMINAL DISCOMFORT
     Dosage: UNK
  9. NEO DOPASTON [Concomitant]
     Indication: PARKINSONISM
     Dosage: UNK
     Dates: start: 20101220
  10. LIPITOR [Suspect]
     Active Substance: ATORVASTATIN CALCIUM
     Indication: DYSLIPIDAEMIA
     Dosage: 5 MG QD
     Route: 048
     Dates: end: 20101224
  11. UNASYN [Suspect]
     Active Substance: AMPICILLIN SODIUM\SULBACTAM SODIUM
     Indication: PNEUMONIA
     Dosage: 3 G BID
     Route: 041
     Dates: start: 20101220, end: 20101228
  12. DOGMATYL [Concomitant]
     Active Substance: SULPIRIDE
     Dosage: UNK
     Dates: end: 20101220
  13. GASCON [Concomitant]
     Active Substance: DIMETHICONE
     Indication: ABDOMINAL DISCOMFORT
     Dosage: UNK

REACTIONS (7)
  - Parkinsonism [Unknown]
  - Drug eruption [Recovered/Resolved]
  - Pneumonia [Recovered/Resolved]
  - Blood creatine phosphokinase increased [Unknown]
  - Aspartate aminotransferase increased [Unknown]
  - Rhabdomyolysis [Recovered/Resolved]
  - Myalgia [Unknown]

NARRATIVE: CASE EVENT DATE: 20101220
